FAERS Safety Report 7287398-4 (Version None)
Quarter: 2011Q1

REPORT INFORMATION
  Report Type: 
  Country: None (occurrence: None)
  Receive Date: 20110211
  Receipt Date: 20110128
  Transmission Date: 20110831
  Serious: Yes (Other)
  Sender: FDA-Public Use
  Company Number: GB-RANBAXY-2011R1-41082

PATIENT
  Age: 9 Year
  Sex: Female

DRUGS (6)
  1. VALPROATE SODIUM [Concomitant]
     Indication: EPILEPSY
     Dosage: 600 MG, BID
     Route: 065
  2. LAMOTRIGINE [Suspect]
     Indication: EPILEPSY
     Dosage: 5 MG, UNK
     Route: 048
     Dates: start: 20101213
  3. AMOXICILLIN [Suspect]
     Indication: UPPER RESPIRATORY TRACT INFECTION
     Dosage: UNK
     Route: 048
     Dates: start: 20101220, end: 20101228
  4. ALBUTEROL [Concomitant]
     Indication: ASTHMA
     Dosage: 100 UG, AS NECESSARY.
     Route: 065
  5. BECLOMETHASONE DIPROPIONATE [Concomitant]
     Indication: ASTHMA
     Dosage: 200 UG, BID
     Route: 065
  6. LAMOTRIGINE [Suspect]
     Dosage: 10 MG, UNK
     Route: 048

REACTIONS (6)
  - STEVENS-JOHNSON SYNDROME [None]
  - RHINITIS [None]
  - ORAL PAIN [None]
  - EYE PAIN [None]
  - RASH [None]
  - LIP DRY [None]
